FAERS Safety Report 13109046 (Version 3)
Quarter: 2017Q1

REPORT INFORMATION
  Report Type: Spontaneous
  Country: US (occurrence: US)
  Receive Date: 20170112
  Receipt Date: 20170328
  Transmission Date: 20170428
  Serious: Yes (Hospitalization, Other)
  Sender: FDA-Public Use
  Company Number: US-PFIZER INC-2017009612

PATIENT
  Age: 100 Year
  Sex: Male

DRUGS (3)
  1. ADVIL [Suspect]
     Active Substance: IBUPROFEN
     Indication: PAIN
     Dosage: 200 MG, UNK, (1 SINGLE TABLET)
     Dates: start: 20170109
  2. ADVIL [Suspect]
     Active Substance: IBUPROFEN
     Indication: MUSCLE SPASMS
  3. ADVIL [Suspect]
     Active Substance: IBUPROFEN
     Indication: PAIN IN EXTREMITY

REACTIONS (10)
  - Foreign body [Recovered/Resolved]
  - Choking [Unknown]
  - Cough [Unknown]
  - Pain [Unknown]
  - Emotional disorder [Unknown]
  - Retching [Unknown]
  - Throat irritation [Unknown]
  - Pharyngeal oedema [Unknown]
  - Product physical issue [Unknown]
  - Vomiting [Unknown]

NARRATIVE: CASE EVENT DATE: 2017
